FAERS Safety Report 25356000 (Version 1)
Quarter: 2025Q2

REPORT INFORMATION
  Report Type: Spontaneous
  Country: US (occurrence: US)
  Receive Date: 20250525
  Receipt Date: 20250525
  Transmission Date: 20250717
  Serious: No
  Sender: AMGEN
  Company Number: US-AMGEN-USASP2025099903

PATIENT
  Sex: Male

DRUGS (4)
  1. KRYSTEXXA [Suspect]
     Active Substance: PEGLOTICASE
     Indication: Gout
     Dosage: UNK UNK, Q2WK
     Route: 040
     Dates: start: 202505
  2. KRYSTEXXA [Suspect]
     Active Substance: PEGLOTICASE
     Dosage: UNK UNK, Q2WK (SECOND INFUSION)
     Route: 040
     Dates: start: 20250519
  3. ULORIC [Concomitant]
     Active Substance: FEBUXOSTAT
  4. ALLOPURINOL [Concomitant]
     Active Substance: ALLOPURINOL

REACTIONS (2)
  - Blood uric acid abnormal [Unknown]
  - Hypersensitivity [Unknown]

NARRATIVE: CASE EVENT DATE: 20250501
